FAERS Safety Report 18589011 (Version 1)
Quarter: 2020Q4

REPORT INFORMATION
  Report Type: Other
  Country: CN (occurrence: CN)
  Receive Date: 20201208
  Receipt Date: 20201208
  Transmission Date: 20210114
  Serious: Yes (Hospitalization, Other)
  Sender: FDA-Public Use
  Company Number: CN-DEXPHARM-20201084

PATIENT
  Age: 20 Year
  Sex: Male

DRUGS (8)
  1. METHYLPREDNISOLONE. [Suspect]
     Active Substance: METHYLPREDNISOLONE
     Route: 048
  2. OMEPRAZOLE. [Interacting]
     Active Substance: OMEPRAZOLE
  3. DOXYCYCLINE. [Suspect]
     Active Substance: DOXYCYCLINE
  4. PANTOPRAZOLE [Interacting]
     Active Substance: PANTOPRAZOLE
  5. OMEPRAZOLE. [Suspect]
     Active Substance: OMEPRAZOLE
  6. PIPERACILLIN/TAZOBACTAM [Suspect]
     Active Substance: PIPERACILLIN SODIUM\TAZOBACTAM SODIUM
  7. METHYLPREDNISOLONE. [Suspect]
     Active Substance: METHYLPREDNISOLONE
     Route: 048
  8. PANTOPRAZOLE [Interacting]
     Active Substance: PANTOPRAZOLE

REACTIONS (2)
  - Drug interaction [Unknown]
  - Linear IgA disease [Recovered/Resolved]
